FAERS Safety Report 4871690-4 (Version None)
Quarter: 2005Q4

REPORT INFORMATION
  Report Type: 
  Country: None (occurrence: None)
  Receive Date: 20051230
  Receipt Date: 20051215
  Transmission Date: 20060501
  Serious: Yes (Hospitalization, Disabling)
  Sender: FDA-Public Use
  Company Number: 2005RR-01350

PATIENT
  Age: 37 Year
  Sex: Male

DRUGS (3)
  1. FLUOXETINE [Suspect]
     Indication: DEPRESSION
     Dosage: 20 MG, UNK, ORAL
     Route: 048
     Dates: start: 20050610
  2. VALPROATE SODIUM [Concomitant]
  3. HALOPERIDOL [Concomitant]

REACTIONS (4)
  - ABASIA [None]
  - ARTHRALGIA [None]
  - HYPERSENSITIVITY [None]
  - RASH [None]
